FAERS Safety Report 19226097 (Version 1)
Quarter: 2021Q2

REPORT INFORMATION
  Report Type: Spontaneous
  Country: US (occurrence: US)
  Receive Date: 20210506
  Receipt Date: 20210506
  Transmission Date: 20210717
  Serious: No
  Sender: FDA-Public Use
  Company Number: US-CELGENEUS-USA-20210406295

PATIENT
  Sex: Female
  Weight: 56 kg

DRUGS (8)
  1. HYDRALAZINE [Concomitant]
     Active Substance: HYDRALAZINE HYDROCHLORIDE
     Indication: PRODUCT USED FOR UNKNOWN INDICATION
     Route: 065
  2. REVLIMID [Suspect]
     Active Substance: LENALIDOMIDE
     Dosage: 10?5MG
     Route: 048
     Dates: start: 201708
  3. METHOTREXATE. [Suspect]
     Active Substance: METHOTREXATE
     Indication: PLASMA CELL MYELOMA
     Route: 065
     Dates: start: 201606
  4. CHOLESTYRAMINE. [Concomitant]
     Active Substance: CHOLESTYRAMINE
     Indication: DIARRHOEA
     Route: 065
  5. REVLIMID [Suspect]
     Active Substance: LENALIDOMIDE
     Indication: PLASMA CELL MYELOMA
     Dosage: 25 MILLIGRAM
     Route: 048
     Dates: start: 201606
  6. REVLIMID [Suspect]
     Active Substance: LENALIDOMIDE
     Dosage: 5 MILLIGRAM
     Route: 048
     Dates: start: 202004
  7. REVLIMID [Suspect]
     Active Substance: LENALIDOMIDE
     Dosage: 5 MILLIGRAM
     Route: 048
     Dates: start: 202104
  8. NINLARO [Concomitant]
     Active Substance: IXAZOMIB CITRATE
     Indication: PLASMA CELL MYELOMA
     Route: 065
     Dates: start: 201606

REACTIONS (3)
  - Feeling abnormal [Unknown]
  - Weight decreased [Unknown]
  - Asthenia [Unknown]
